FAERS Safety Report 13591865 (Version 1)
Quarter: 2017Q2

REPORT INFORMATION
  Report Type: Spontaneous
  Country: US (occurrence: US)
  Receive Date: 20170530
  Receipt Date: 20170530
  Transmission Date: 20170830
  Serious: Yes (Other)
  Sender: FDA-Public Use
  Company Number: US-PFIZER INC-2017233535

PATIENT
  Age: 9 Decade
  Sex: Female

DRUGS (2)
  1. LYRICA [Interacting]
     Active Substance: PREGABALIN
     Dosage: UNK
  2. GABAPENTIN. [Suspect]
     Active Substance: GABAPENTIN
     Dosage: UNK

REACTIONS (12)
  - Rib fracture [Unknown]
  - Loss of personal independence in daily activities [Unknown]
  - Peripheral swelling [Unknown]
  - Irritability [Unknown]
  - Neuropathy peripheral [Unknown]
  - Urinary incontinence [Unknown]
  - Drug interaction [Unknown]
  - Wheezing [Unknown]
  - Pain [Unknown]
  - Diabetes mellitus [Unknown]
  - Fall [Unknown]
  - Tobacco user [Unknown]
